FAERS Safety Report 5518876-3 (Version None)
Quarter: 2007Q4

REPORT INFORMATION
  Report Type: 
  Country: None (occurrence: None)
  Receive Date: 20071114
  Receipt Date: 20071107
  Transmission Date: 20080405
  Serious: Yes (Life-Threatening, Hospitalization, Other)
  Sender: FDA-Public Use
  Company Number: 163-21880-07080288

PATIENT
  Age: 80 Year
  Sex: Female

DRUGS (14)
  1. REVLIMID [Suspect]
     Indication: MYELODYSPLASTIC SYNDROME
     Dosage: 5 MG, DAILY, ORAL
     Route: 048
     Dates: start: 20070207, end: 20070701
  2. COUMADIN [Concomitant]
  3. OXYCODONE (OXYCODONE) (7.5 MILLIGRAM, TABLETS) [Concomitant]
  4. ERYTHROPOETIN (EPOETIN ALFA) [Concomitant]
  5. ASPIRIN [Concomitant]
  6. ATENOLOL [Concomitant]
  7. GLUCOPHAGE [Concomitant]
  8. NITRO PATCH (GLYCERYL TRINITRATE) (POULTICE OR PATCH) [Concomitant]
  9. NEURONTIN [Concomitant]
  10. LEVOXYL [Concomitant]
  11. MINITRAN [Concomitant]
  12. GLYBURIDE (GLIBENCLAMIDE) (1.25 MILLIGRAM, CAPSULES) [Concomitant]
  13. SPIRONOLACTONE [Concomitant]
  14. NITROGLYCERIN [Concomitant]

REACTIONS (9)
  - ANAEMIA [None]
  - CEREBROVASCULAR ACCIDENT [None]
  - CYANOSIS [None]
  - DEEP VEIN THROMBOSIS [None]
  - INTERNATIONAL NORMALISED RATIO INCREASED [None]
  - PERIPHERAL ISCHAEMIA [None]
  - PROTHROMBIN TIME PROLONGED [None]
  - REFUSAL OF TREATMENT BY PATIENT [None]
  - REFUSAL OF TREATMENT BY RELATIVE [None]
